FAERS Safety Report 7822713-1 (Version None)
Quarter: 2011Q4

REPORT INFORMATION
  Report Type: 
  Country: None (occurrence: None)
  Receive Date: 20111018
  Receipt Date: 20111010
  Transmission Date: 20120403
  Serious: Yes (Other)
  Sender: FDA-Public Use
  Company Number: SE-ROCHE-1003366

PATIENT
  Sex: Female

DRUGS (3)
  1. ACTEMRA [Suspect]
     Indication: PRODUCT USED FOR UNKNOWN INDICATION
     Route: 041
  2. CORTISONE ACETATE [Concomitant]
  3. CORTISONE ACETATE [Concomitant]

REACTIONS (1)
  - CUTANEOUS VASCULITIS [None]
